FAERS Safety Report 7643097-8 (Version None)
Quarter: 2011Q3

REPORT INFORMATION
  Report Type: 
  Country: None (occurrence: None)
  Receive Date: 20110728
  Receipt Date: 20110725
  Transmission Date: 20111222
  Serious: Yes (Hospitalization)
  Sender: FDA-Public Use
  Company Number: CA-ABBOTT-11P-028-0841991-00

PATIENT
  Sex: Male
  Weight: 65.83 kg

DRUGS (1)
  1. HUMIRA [Suspect]
     Indication: CROHN'S DISEASE
     Route: 058
     Dates: start: 20101004, end: 20110708

REACTIONS (8)
  - PYREXIA [None]
  - DIZZINESS [None]
  - HEADACHE [None]
  - DIARRHOEA [None]
  - DEHYDRATION [None]
  - WEIGHT DECREASED [None]
  - DECREASED APPETITE [None]
  - HEART RATE INCREASED [None]
